FAERS Safety Report 20938905 (Version 2)
Quarter: 2022Q3

REPORT INFORMATION
  Report Type: Spontaneous
  Country: US (occurrence: US)
  Receive Date: 20220609
  Receipt Date: 20220701
  Transmission Date: 20221026
  Serious: No
  Sender: FDA-Public Use
  Company Number: US-ORGANON-O2206USA000627

PATIENT
  Age: 41 Year
  Sex: Female
  Weight: 67.574 kg

DRUGS (2)
  1. FOLLISTIM AQ [Suspect]
     Active Substance: FOLLITROPIN
     Indication: Infertility female
     Dosage: 300 IU PER DAY
     Route: 058
     Dates: start: 20220605
  2. FOLLISTIM AQ [Suspect]
     Active Substance: FOLLITROPIN

REACTIONS (3)
  - Paraesthesia [Recovered/Resolved]
  - Device leakage [Unknown]
  - Exposure via direct contact [Unknown]

NARRATIVE: CASE EVENT DATE: 20220605
